FAERS Safety Report 14689611 (Version 12)
Quarter: 2019Q2

REPORT INFORMATION
  Report Type: Spontaneous
  Country: CA (occurrence: CA)
  Receive Date: 20180328
  Receipt Date: 20190529
  Transmission Date: 20190711
  Serious: Yes (Hospitalization, Other)
  Sender: FDA-Public Use
  Company Number: CA-CELLTRION INC.-2018CA018745

PATIENT

DRUGS (21)
  1. INFLECTRA [Suspect]
     Active Substance: INFLIXIMAB-DYYB
     Dosage: 400 MG ON EVERY 0, 2, 6, THEN EVERY 8 WEEKS
     Route: 042
     Dates: start: 20180928
  2. FERROUS SULFATE. [Concomitant]
     Active Substance: FERROUS SULFATE
     Dosage: UNK
  3. FERROUS SULFATE. [Concomitant]
     Active Substance: FERROUS SULFATE
     Dosage: UNK
     Route: 065
  4. INFLECTRA [Suspect]
     Active Substance: INFLIXIMAB-DYYB
     Dosage: 400 MG ON EVERY 0, 2, 6, THEN EVERY 8 WEEKS
     Route: 042
     Dates: start: 20181123
  5. OLMETEC [Concomitant]
     Active Substance: OLMESARTAN MEDOXOMIL
     Dosage: UNK, 1X/DAY
  6. ACETAMINOPHEN. [Concomitant]
     Active Substance: ACETAMINOPHEN
     Dosage: 1000 MG, UNK
     Route: 048
     Dates: start: 20181123
  7. ACETAMINOPHEN. [Concomitant]
     Active Substance: ACETAMINOPHEN
     Dosage: 1000 MG, UNK
     Route: 048
     Dates: start: 20190123
  8. INFLECTRA [Suspect]
     Active Substance: INFLIXIMAB-DYYB
     Dosage: 400 MG ON EVERY 0, 2, 6, THEN EVERY 8 WEEKS
     Route: 042
     Dates: start: 20180803
  9. INFLECTRA [Suspect]
     Active Substance: INFLIXIMAB-DYYB
     Dosage: 400 MG ON EVERY 0, 2, 6, THEN EVERY 8 WEEKS
     Route: 042
     Dates: start: 20190322
  10. INFLECTRA [Suspect]
     Active Substance: INFLIXIMAB-DYYB
     Dosage: 400 MG ON EVERY 0, 2, 6, THEN EVERY 8 WEEKS
     Route: 042
     Dates: start: 20190515
  11. BISOPROLOL [Concomitant]
     Active Substance: BISOPROLOL
     Dosage: UNK
  12. EURO D [Concomitant]
     Dosage: 2 TABLET (DF), 1X/DAY
  13. PANTOPRAZOLE [Concomitant]
     Active Substance: PANTOPRAZOLE
     Dosage: 40 MG, 1X/DAY
  14. ACETAMINOPHEN. [Concomitant]
     Active Substance: ACETAMINOPHEN
     Indication: PREMEDICATION
     Dosage: 1000 MG, UNK
     Route: 048
     Dates: start: 20180608
  15. INFLECTRA [Suspect]
     Active Substance: INFLIXIMAB-DYYB
     Dosage: 400 MG ON EVERY 0, 2, 6, THEN EVERY 8 WEEKS
     Route: 042
     Dates: start: 20180313
  16. INFLECTRA [Suspect]
     Active Substance: INFLIXIMAB-DYYB
     Indication: CROHN^S DISEASE
     Dosage: 400 MG ON EVERY 0, 2, 6, THEN EVERY 8 WEEKS
     Route: 042
     Dates: start: 20180220
  17. INFLECTRA [Suspect]
     Active Substance: INFLIXIMAB-DYYB
     Dosage: 400 MG ON EVERY 0, 2, 6, THEN EVERY 8 WEEKS
     Route: 042
     Dates: start: 20180413
  18. INFLECTRA [Suspect]
     Active Substance: INFLIXIMAB-DYYB
     Dosage: 400 MG ON EVERY 0, 2, 6, THEN EVERY 8 WEEKS
     Route: 042
     Dates: start: 20180608
  19. INFLECTRA [Suspect]
     Active Substance: INFLIXIMAB-DYYB
     Dosage: 400 MG ON EVERY 0, 2, 6, THEN EVERY 8 WEEKS
     Route: 042
     Dates: start: 20190123
  20. INFLECTRA [Suspect]
     Active Substance: INFLIXIMAB-DYYB
     Dosage: 400 MG, ON EVERY 0, 2, 6, THEN EVERY 8 WEEKS
     Route: 042
     Dates: start: 20190123
  21. BISOPROLOL [Concomitant]
     Active Substance: BISOPROLOL
     Dosage: UNK
     Route: 065

REACTIONS (13)
  - Pulmonary oedema [Unknown]
  - Upper respiratory fungal infection [Unknown]
  - Blood pressure fluctuation [Unknown]
  - Heart rate abnormal [Unknown]
  - Oesophageal obstruction [Unknown]
  - Infusion site haemorrhage [Unknown]
  - Urinary tract infection [Unknown]
  - Onychomycosis [Unknown]
  - Anxiety [Unknown]
  - Constipation [Unknown]
  - Dyspnoea [Unknown]
  - Oral fungal infection [Recovered/Resolved]
  - Oesophageal pain [Not Recovered/Not Resolved]

NARRATIVE: CASE EVENT DATE: 201803
